FAERS Safety Report 8584551-4 (Version None)
Quarter: 2012Q3

REPORT INFORMATION
  Report Type: 
  Country: None (occurrence: None)
  Receive Date: 20120730
  Receipt Date: 20120716
  Transmission Date: 20120928
  Serious: Yes (Hospitalization, Other)
  Sender: FDA-Public Use
  Company Number: 2012P1049660

PATIENT
  Age: 52 Year
  Sex: Female
  Weight: 74.8435 kg

DRUGS (2)
  1. FENTANYL [Suspect]
     Indication: BACK PAIN
     Dosage: ; TDER
     Route: 062
     Dates: start: 20111001, end: 20111015
  2. FENTANYL [Suspect]
     Indication: BACK PAIN
     Dosage: ; TDER
     Route: 062
     Dates: start: 20120716, end: 20120716

REACTIONS (2)
  - BRADYCARDIA [None]
  - CARDIAC PACEMAKER INSERTION [None]
